FAERS Safety Report 19265297 (Version 2)
Quarter: 2021Q2

REPORT INFORMATION
  Report Type: Spontaneous
  Country: US (occurrence: US)
  Receive Date: 20210517
  Receipt Date: 20210519
  Transmission Date: 20210717
  Serious: Yes (Other)
  Sender: FDA-Public Use
  Company Number: US-GW PHARMA-202105USGW02291

PATIENT

DRUGS (1)
  1. EPIDIOLEX [Suspect]
     Active Substance: CANNABIDIOL
     Indication: IDIOPATHIC GENERALISED EPILEPSY
     Dosage: 300 MILLIGRAM, BID
     Route: 048
     Dates: start: 202009

REACTIONS (4)
  - Suicidal ideation [Unknown]
  - Rash [Unknown]
  - Product use in unapproved indication [Unknown]
  - Blood bilirubin increased [Unknown]
